FAERS Safety Report 12611339 (Version 2)
Quarter: 2016Q3

REPORT INFORMATION
  Report Type: Spontaneous
  Country: US (occurrence: US)
  Receive Date: 20160801
  Receipt Date: 20160831
  Transmission Date: 20161109
  Serious: Yes (Other)
  Sender: FDA-Public Use
  Company Number: US-BAYER-2016-148081

PATIENT
  Age: 28 Year
  Sex: Female
  Weight: 76.64 kg

DRUGS (3)
  1. MIRENA [Suspect]
     Active Substance: LEVONORGESTREL
     Dosage: 20 MCG/24HR, CONT
     Route: 015
     Dates: start: 20160617, end: 20160714
  2. LUTERA [Concomitant]
     Active Substance: ETHINYL ESTRADIOL\LEVONORGESTREL
     Dosage: 1 DF, QD
     Route: 048
     Dates: start: 20160531
  3. PRENATAL VITAMINS [Concomitant]
     Active Substance: VITAMINS
     Dosage: UNK

REACTIONS (9)
  - Nausea [Recovered/Resolved]
  - Pelvic pain [None]
  - Abdominal pain upper [Recovering/Resolving]
  - Abdominal pain lower [Recovering/Resolving]
  - Abdominal tenderness [None]
  - Dysfunctional uterine bleeding [None]
  - Dysmenorrhoea [None]
  - Genital haemorrhage [Not Recovered/Not Resolved]
  - Adnexa uteri pain [None]

NARRATIVE: CASE EVENT DATE: 201607
